FAERS Safety Report 6745048-7 (Version None)
Quarter: 2010Q2

REPORT INFORMATION
  Report Type: 
  Country: None (occurrence: None)
  Receive Date: 20100527
  Receipt Date: 20100521
  Transmission Date: 20101027
  Serious: Yes (Death)
  Sender: FDA-Public Use
  Company Number: US-GILEAD-2010-0029395

PATIENT
  Sex: Female

DRUGS (12)
  1. LETAIRIS [Suspect]
     Indication: PULMONARY ARTERIAL HYPERTENSION
     Route: 048
     Dates: start: 20080509
  2. COREG [Concomitant]
  3. DIGOXIN [Concomitant]
  4. FUROSEMIDE [Concomitant]
  5. VASOTEC [Concomitant]
  6. SPIRONOLACTONE [Concomitant]
  7. POTASSIUM [Concomitant]
  8. CALCIUM CARBONATE [Concomitant]
  9. CLARITIN [Concomitant]
  10. VICODIN [Concomitant]
  11. PRILOSEC [Concomitant]
  12. IRON [Concomitant]

REACTIONS (1)
  - DEATH [None]
